FAERS Safety Report 8270214-1 (Version None)
Quarter: 2012Q2

REPORT INFORMATION
  Report Type: 
  Country: None (occurrence: None)
  Receive Date: 20120410
  Receipt Date: 20120402
  Transmission Date: 20120825
  Serious: Yes (Other)
  Sender: FDA-Public Use
  Company Number: US-JNJFOC-20120206042

PATIENT
  Age: 64 Year
  Sex: Female
  Weight: 67.59 kg

DRUGS (6)
  1. TYLENOL COLD MULTI-SYMPTOM DAYTIME RAPID RELEASE [Suspect]
     Indication: NASOPHARYNGITIS
     Route: 048
     Dates: start: 20120207, end: 20120208
  2. VITAMIN D [Concomitant]
     Indication: PRODUCT USED FOR UNKNOWN INDICATION
     Dosage: 4000 IU PER DAY FOR THE PAST 2 YEARS
     Route: 065
  3. VOLTAREN [Concomitant]
     Indication: ARTHRITIS
     Dosage: 2 PILLS PER DAY FOR THE PAST 2 YEARS
     Route: 065
  4. SIMVASTATIN [Concomitant]
     Indication: BLOOD CHOLESTEROL INCREASED
     Dosage: 20 MG PER DAY TAKEN FOR THE PAST 2 YEARS
     Route: 065
  5. TYLENOL COLD MULTI-SYMPTOM DAYTIME RAPID RELEASE [Suspect]
     Indication: RHINORRHOEA
     Route: 048
     Dates: start: 20120207, end: 20120208
  6. CALCIUM CARBONATE [Concomitant]
     Indication: PRODUCT USED FOR UNKNOWN INDICATION
     Dosage: 1200 MG PER DAY TAKEN FOR THE PAST 2 YEARS
     Route: 065

REACTIONS (5)
  - HYPERTENSION [None]
  - EXPIRED DRUG ADMINISTERED [None]
  - VOMITING [None]
  - URINARY INCONTINENCE [None]
  - LOSS OF CONSCIOUSNESS [None]
